FAERS Safety Report 9915786 (Version 7)
Quarter: 2016Q2

REPORT INFORMATION
  Report Type: Spontaneous
  Country: US (occurrence: US)
  Receive Date: 20140221
  Receipt Date: 20160404
  Transmission Date: 20160815
  Serious: Yes (Other)
  Sender: FDA-Public Use
  Company Number: US-009507513-1402USA008032

PATIENT
  Sex: Male
  Weight: 93.42 kg

DRUGS (4)
  1. AMBIEN [Concomitant]
     Active Substance: ZOLPIDEM TARTRATE
     Dosage: UNK
     Dates: start: 2000
  2. AVODART [Concomitant]
     Active Substance: DUTASTERIDE
     Indication: PROSTATOMEGALY
     Dosage: UNK
     Dates: start: 20021120, end: 2010
  3. PROSCAR [Suspect]
     Active Substance: FINASTERIDE
     Indication: BENIGN PROSTATIC HYPERPLASIA
     Dosage: 5 MG, QD
     Route: 048
     Dates: start: 20021120, end: 20060526
  4. ANALGESIC (UNSPECIFIED) [Concomitant]
     Active Substance: UNSPECIFIED INGREDIENT
     Dosage: UNK
     Dates: start: 1988

REACTIONS (19)
  - Abdominal pain lower [Unknown]
  - Type V hyperlipidaemia [Unknown]
  - Gynaecomastia [Unknown]
  - Sexual dysfunction [Not Recovered/Not Resolved]
  - Limb injury [Unknown]
  - Calculus prostatic [Unknown]
  - Essential hypertension [Unknown]
  - Urinary tract infection [Not Recovered/Not Resolved]
  - Skin neoplasm excision [Unknown]
  - Prostate cancer [Unknown]
  - Basal cell carcinoma [Unknown]
  - Anxiety [Unknown]
  - Knee operation [Unknown]
  - Liver disorder [Unknown]
  - Clavicle fracture [Unknown]
  - Erectile dysfunction [Recovered/Resolved]
  - Vitamin D deficiency [Unknown]
  - Back pain [Unknown]
  - Panic attack [Unknown]

NARRATIVE: CASE EVENT DATE: 20021216
